FAERS Safety Report 7759757-4 (Version None)
Quarter: 2011Q3

REPORT INFORMATION
  Report Type: 
  Country: None (occurrence: None)
  Receive Date: 20110919
  Receipt Date: 20110912
  Transmission Date: 20111222
  Serious: Yes (Other)
  Sender: FDA-Public Use
  Company Number: PHHY2011GB12767

PATIENT
  Age: 37 Year
  Sex: Female

DRUGS (5)
  1. ACETAMINOPHEN AND CODEINE PHOSPHATE [Suspect]
     Dosage: 1 G,
     Route: 048
  2. MS CONTIN [Suspect]
     Dosage: 5 MG
     Route: 048
     Dates: start: 20100922
  3. BUPRENORPHINE [Suspect]
     Indication: SYMPHYSIOLYSIS
     Dosage: 10 UG, ONE HOURS
     Route: 062
     Dates: start: 20101215, end: 20101229
  4. CITALOPRAM HYDROBROMIDE [Concomitant]
  5. ACETAMINOPHEN [Suspect]
     Dosage: 10 MG, PER HOUR

REACTIONS (4)
  - INTRA-UTERINE DEATH [None]
  - ABORTION SPONTANEOUS [None]
  - DRUG INEFFECTIVE [None]
  - MATERNAL EXPOSURE DURING PREGNANCY [None]
